FAERS Safety Report 5420603-5 (Version None)
Quarter: 2007Q3

REPORT INFORMATION
  Report Type: 
  Country: None (occurrence: None)
  Receive Date: 20070718
  Receipt Date: 20060729
  Transmission Date: 20080115
  Serious: Yes (Other)
  Sender: FDA-Public Use
  Company Number: 2006085272

PATIENT
  Sex: Male

DRUGS (1)
  1. CELEBREX [Suspect]
     Indication: HIP FRACTURE
     Dosage: 200 MG (200 MG, 1 IN 1 D)
     Dates: end: 20060101

REACTIONS (6)
  - GASTROENTERITIS VIRAL [None]
  - HIP FRACTURE [None]
  - PAIN [None]
  - RASH ERYTHEMATOUS [None]
  - RASH PRURITIC [None]
  - VIRAL INFECTION [None]
